FAERS Safety Report 10930486 (Version 1)
Quarter: 2015Q1

REPORT INFORMATION
  Report Type: Spontaneous
  Country: US (occurrence: None)
  Receive Date: 20150317
  Receipt Date: 20150317
  Transmission Date: 20150721
  Serious: Yes (Other)
  Sender: FDA-Public Use
  Company Number: 2015AKN00127

PATIENT
  Age: 44 Year
  Sex: Female

DRUGS (1)
  1. MYORISAN [Suspect]
     Active Substance: ISOTRETINOIN
     Dates: start: 20141212

REACTIONS (3)
  - Myalgia [None]
  - Depression [None]
  - Arthralgia [None]
